FAERS Safety Report 12718435 (Version 1)
Quarter: 2016Q3

REPORT INFORMATION
  Report Type: Report from Study
  Country: US (occurrence: US)
  Receive Date: 20160906
  Receipt Date: 20160906
  Transmission Date: 20161109
  Serious: Yes (Hospitalization, Other)
  Sender: FDA-Public Use
  Company Number: US-AMGEN-USASL2016082177

PATIENT
  Age: 58 Year
  Sex: Female

DRUGS (1)
  1. BLINCYTO [Suspect]
     Active Substance: BLINATUMOMAB
     Indication: ACUTE LYMPHOCYTIC LEUKAEMIA RECURRENT
     Dosage: UNK
     Route: 065

REACTIONS (7)
  - Flushing [Unknown]
  - Headache [Recovering/Resolving]
  - Hypotension [Unknown]
  - Nausea [Recovering/Resolving]
  - Muscular weakness [Recovering/Resolving]
  - Pain [Unknown]
  - Neurotoxicity [Unknown]
